FAERS Safety Report 16254822 (Version 1)
Quarter: 2019Q2

REPORT INFORMATION
  Report Type: Report from Study
  Country: US (occurrence: US)
  Receive Date: 20190430
  Receipt Date: 20190430
  Transmission Date: 20190711
  Serious: Yes (Death, Hospitalization, Other)
  Sender: FDA-Public Use
  Company Number: US-SA-2018SA039391

PATIENT
  Age: 46 Year
  Sex: Female

DRUGS (1)
  1. ALEMTUZUMAB [Suspect]
     Active Substance: ALEMTUZUMAB
     Indication: MULTIPLE SCLEROSIS
     Dosage: 12 MG,QD
     Route: 041
     Dates: start: 20160412, end: 20160416

REACTIONS (5)
  - Cardiac failure [Fatal]
  - Pneumonia [Unknown]
  - Renal failure [Fatal]
  - Malaise [Unknown]
  - Arterial perforation [Not Recovered/Not Resolved]

NARRATIVE: CASE EVENT DATE: 20180124
